FAERS Safety Report 4927772-1 (Version None)
Quarter: 2006Q1

REPORT INFORMATION
  Report Type: 
  Country: None (occurrence: None)
  Receive Date: 20060228
  Receipt Date: 20050803
  Transmission Date: 20060701
  Serious: Yes (Hospitalization)
  Sender: FDA-Public Use
  Company Number: 2005-BP-10685BP

PATIENT
  Sex: Male

DRUGS (4)
  1. ZIAGEN [Suspect]
     Indication: DRUG USE FOR UNKNOWN INDICATION
     Route: 048
  2. VIRAMUNE [Suspect]
     Indication: DRUG USE FOR UNKNOWN INDICATION
     Dosage: 200MG TWICE PER DAY
     Route: 048
     Dates: start: 20050601, end: 20050610
  3. EMTRIVA [Concomitant]
  4. GLUCOPHAGE [Concomitant]

REACTIONS (4)
  - DRUG HYPERSENSITIVITY [None]
  - HYPERSENSITIVITY [None]
  - RASH GENERALISED [None]
  - STEVENS-JOHNSON SYNDROME [None]
